FAERS Safety Report 11004211 (Version 1)
Quarter: 2015Q2

REPORT INFORMATION
  Report Type: Spontaneous
  Country: FR (occurrence: FR)
  Receive Date: 20150409
  Receipt Date: 20150409
  Transmission Date: 20150821
  Serious: Yes (Hospitalization)
  Sender: FDA-Public Use
  Company Number: FR-TEVA-552364ISR

PATIENT
  Age: 79 Year
  Sex: Male

DRUGS (7)
  1. APROVEL [Concomitant]
     Active Substance: IRBESARTAN
     Dosage: 300 MILLIGRAM DAILY;
     Route: 048
     Dates: end: 20141222
  2. SINEMET [Suspect]
     Active Substance: CARBIDOPA\LEVODOPA
     Indication: PARKINSON^S DISEASE
     Route: 048
     Dates: end: 20141210
  3. CIPROFIBRATE [Concomitant]
     Active Substance: CIPROFIBRATE
     Dosage: 1 DOSAGE FORMS DAILY;
     Route: 048
  4. LASILIX [Concomitant]
     Active Substance: FUROSEMIDE
     Indication: HALLUCINATION
     Dosage: 40 MILLIGRAM DAILY;
     Route: 048
  5. AZILECT [Suspect]
     Active Substance: RASAGILINE MESYLATE
     Indication: PARKINSON^S DISEASE
     Dosage: 1 MILLIGRAM DAILY;
     Route: 048
     Dates: end: 20141203
  6. MANTADIX 100 MG [Suspect]
     Active Substance: AMANTADINE HYDROCHLORIDE
     Indication: PARKINSON^S DISEASE
     Route: 048
     Dates: end: 20141203
  7. SINEMET [Suspect]
     Active Substance: CARBIDOPA\LEVODOPA
     Dosage: DOSE WAS REDUCED
     Route: 048
     Dates: start: 20141213

REACTIONS (3)
  - General physical health deterioration [Unknown]
  - Hallucination [Recovered/Resolved]
  - Dyskinesia [Unknown]

NARRATIVE: CASE EVENT DATE: 201412
